FAERS Safety Report 16474321 (Version 1)
Quarter: 2019Q2

REPORT INFORMATION
  Report Type: Spontaneous
  Country: US (occurrence: US)
  Receive Date: 20190515
  Receipt Date: 20190515
  Transmission Date: 20190711
  Serious: Yes (Other)
  Sender: FDA-Public Use
  Company Number: None

PATIENT

DRUGS (17)
  1. ZESTRIL [Concomitant]
     Active Substance: LISINOPRIL
  2. PATADAY [Concomitant]
     Active Substance: OLOPATADINE HYDROCHLORIDE
  3. DULERA [Concomitant]
     Active Substance: FORMOTEROL FUMARATE DIHYDRATE\MOMETASONE FUROATE
  4. SPIRIVA [Concomitant]
     Active Substance: TIOTROPIUM BROMIDE MONOHYDRATE
  5. BUSPIRONE [Concomitant]
     Active Substance: BUSPIRONE HYDROCHLORIDE
  6. FLONASE [Concomitant]
     Active Substance: FLUTICASONE PROPIONATE
  7. TOPROZ [Concomitant]
  8. XANAX [Concomitant]
     Active Substance: ALPRAZOLAM
  9. EFFEXOR [Concomitant]
     Active Substance: VENLAFAXINE HYDROCHLORIDE
  10. LISINOPRIL. [Concomitant]
     Active Substance: LISINOPRIL
  11. SPIROLACTIN [Concomitant]
  12. DUPIXENT [Suspect]
     Active Substance: DUPILUMAB
     Indication: ASTHMA
     Dosage: 2 SHOTS INJECTION IN ABDOMEN
     Route: 058
     Dates: start: 20190314, end: 20190314
  13. AMLODIPINE [Concomitant]
     Active Substance: AMLODIPINE BESYLATE
  14. ZANTAC [Concomitant]
     Active Substance: RANITIDINE HYDROCHLORIDE
  15. MUCINEX [Concomitant]
     Active Substance: GUAIFENESIN
  16. LEVSIN [Concomitant]
     Active Substance: HYOSCYAMINE SULFATE
  17. PATANASE [Concomitant]
     Active Substance: OLOPATADINE HYDROCHLORIDE

REACTIONS (6)
  - Myalgia [None]
  - Oropharyngeal pain [None]
  - Dry eye [None]
  - Pyrexia [None]
  - Arthralgia [None]
  - Injection site rash [None]
